FAERS Safety Report 4973922-0 (Version None)
Quarter: 2006Q2

REPORT INFORMATION
  Report Type: 
  Country: None (occurrence: None)
  Receive Date: 20060410
  Receipt Date: 20060401
  Transmission Date: 20061013
  Serious: Yes (Other)
  Sender: FDA-Public Use
  Company Number: 163-20785-04100115

PATIENT
  Sex: Male

DRUGS (2)
  1. THALIDOMIDE\PLACEBO (THALIDOMIDE) (CAPSULES) [Suspect]
     Indication: PROSTATIC INTRAEPITHELIAL NEOPLASIA
     Dosage: 200 MG OR PLACEBO DAILY ORAL
     Route: 048
     Dates: start: 20030210
  2. LEUPROLIDE ACETATE [Suspect]
     Indication: PROSTATIC INTRAEPITHELIAL NEOPLASIA
     Dosage: (L) 7.5 MG IM OR (G) 3.5 MG SC
     Route: 030
     Dates: start: 20030210

REACTIONS (16)
  - CONSTIPATION [None]
  - DIZZINESS [None]
  - FATIGUE [None]
  - GASTRIC ULCER [None]
  - GASTRITIS [None]
  - HEADACHE [None]
  - HYPERCALCAEMIA [None]
  - HYPERTENSION [None]
  - HYPOALBUMINAEMIA [None]
  - INCONTINENCE [None]
  - INFECTION [None]
  - NAUSEA [None]
  - OEDEMA [None]
  - PERIPHERAL SENSORY NEUROPATHY [None]
  - TREMOR [None]
  - WEIGHT INCREASED [None]
